FAERS Safety Report 21104915 (Version 1)
Quarter: 2022Q3

REPORT INFORMATION
  Report Type: Spontaneous
  Country: US (occurrence: None)
  Receive Date: 20220719
  Receipt Date: 20220719
  Transmission Date: 20221027
  Serious: Yes (Death, Life-Threatening, Hospitalization)
  Sender: FDA-Public Use
  Company Number: None

PATIENT
  Age: 57 Year
  Sex: Male
  Weight: 92.1 kg

DRUGS (2)
  1. XPOVIO [Suspect]
     Active Substance: SELINEXOR
     Indication: Lymphoma
     Dosage: OTHER FREQUENCY : ONCE WEEKLY;?
     Route: 048
     Dates: start: 20220517, end: 20220525
  2. DARATUMUMAB [Concomitant]
     Active Substance: DARATUMUMAB
     Dates: start: 20220421, end: 20220512

REACTIONS (3)
  - Mental status changes [None]
  - Acute kidney injury [None]
  - Tumour lysis syndrome [None]

NARRATIVE: CASE EVENT DATE: 20220525
